FAERS Safety Report 22530954 (Version 3)
Quarter: 2024Q4

REPORT INFORMATION
  Report Type: Spontaneous
  Country: FR (occurrence: FR)
  Receive Date: 20230607
  Receipt Date: 20241010
  Transmission Date: 20250115
  Serious: Yes (Life-Threatening, Hospitalization)
  Sender: RANBAXY
  Company Number: FR-AFSSAPS-RN2023000299

PATIENT
  Age: 55 Year
  Sex: Male

DRUGS (44)
  1. MORPHINE [Suspect]
     Active Substance: MORPHINE
     Indication: Pain
     Dosage: 1 TAB SKENAN LP30MG EVERY 12 HOURS
     Route: 048
     Dates: start: 20230210, end: 20230218
  2. CASPOFUNGIN [Suspect]
     Active Substance: CASPOFUNGIN
     Indication: Fungal infection
     Dosage: 70 MILLIGRAM
     Route: 040
     Dates: start: 20230126
  3. ACETAMINOPHEN [Suspect]
     Active Substance: ACETAMINOPHEN
     Indication: Pain
     Dosage: 1 TAB EVERY 6 HOURS, MAXIMUM 3 TABS/D
     Route: 048
     Dates: start: 20230211
  4. ACETAMINOPHEN [Suspect]
     Active Substance: ACETAMINOPHEN
     Indication: Pain
  5. CIPROFLOXACIN [Suspect]
     Active Substance: CIPROFLOXACIN
     Indication: Bacterial infection
     Dosage: UNK
     Route: 065
     Dates: start: 20230203, end: 20230208
  6. VALACYCLOVIR [Suspect]
     Active Substance: VALACYCLOVIR HYDROCHLORIDE
     Indication: Bacterial infection
     Dosage: 1000 MILLIGRAM, 500MG MORNING AND EVENING
     Route: 048
     Dates: start: 20230106
  7. PANTOPRAZOLE [Suspect]
     Active Substance: PANTOPRAZOLE
     Indication: Gastritis prophylaxis
     Dosage: 20 MILLIGRAM
     Route: 048
     Dates: start: 20230106
  8. PANTOPRAZOLE [Suspect]
     Active Substance: PANTOPRAZOLE
     Indication: Gastritis prophylaxis
  9. NALOXEGOL OXALATE [Suspect]
     Active Substance: NALOXEGOL OXALATE
     Indication: Constipation
     Dosage: IF NECESSARY
     Route: 048
     Dates: start: 20230211
  10. CILASTATIN SODIUM\IMIPENEM [Suspect]
     Active Substance: CILASTATIN SODIUM\IMIPENEM
     Indication: Bacterial infection
     Dosage: 1 INJECTION (800 MG) PAR JOUR
     Route: 040
     Dates: start: 20230114, end: 20230208
  11. DOXORUBICIN [Suspect]
     Active Substance: DOXORUBICIN
     Indication: Diffuse large B-cell lymphoma
     Dosage: 1 CURE
     Route: 065
     Dates: start: 20221227
  12. BACTRIM [Suspect]
     Active Substance: SULFAMETHOXAZOLE\TRIMETHOPRIM
     Indication: Bacterial infection
     Dosage: 1 CP IN THE MORNING (400 MG)
     Route: 048
     Dates: start: 20230106, end: 20230303
  13. BACTRIM [Suspect]
     Active Substance: SULFAMETHOXAZOLE\TRIMETHOPRIM
     Indication: Bacterial infection
  14. LOVENOX [Suspect]
     Active Substance: ENOXAPARIN SODIUM
     Indication: Prophylaxis
     Dosage: 4000 INTERNATIONAL UNIT
     Route: 058
     Dates: start: 20230210
  15. LOVENOX [Suspect]
     Active Substance: ENOXAPARIN SODIUM
     Indication: Prophylaxis
  16. METRONIDAZOLE [Suspect]
     Active Substance: METRONIDAZOLE
     Indication: Bacterial infection
     Dosage: 1500 MILLIGRAM, 500 MG MORNING, NOON AND EVENING
     Route: 048
     Dates: start: 20230209, end: 20230303
  17. RITUXIMAB [Suspect]
     Active Substance: RITUXIMAB
     Indication: Diffuse large B-cell lymphoma
     Dosage: 1 CURE
     Route: 065
     Dates: start: 20221227
  18. VINCRISTINE [Suspect]
     Active Substance: VINCRISTINE
     Indication: Diffuse large B-cell lymphoma
     Dosage: 1 CURE
     Route: 065
     Dates: start: 20221227
  19. VINCRISTINE [Suspect]
     Active Substance: VINCRISTINE
     Dosage: 1 CURE
     Route: 065
     Dates: start: 20221227
  20. AMITRIPTYLINE HYDROCHLORIDE [Suspect]
     Active Substance: AMITRIPTYLINE HYDROCHLORIDE
     Indication: Pain
     Dosage: 5 GOUTTES MATIN ET 10 GOUTTES MIDI ET SOIR
     Route: 048
     Dates: start: 20221210
  21. AMITRIPTYLINE HYDROCHLORIDE [Suspect]
     Active Substance: AMITRIPTYLINE HYDROCHLORIDE
     Indication: Pain
  22. LEUCOVORIN CALCIUM [Suspect]
     Active Substance: LEUCOVORIN CALCIUM
     Indication: Prophylaxis
     Dosage: A CP EVERY MONDAY AND THURSDAY
     Route: 048
     Dates: start: 20230102
  23. DAPTOMYCIN [Suspect]
     Active Substance: DAPTOMYCIN
     Indication: Bacterial infection
     Dosage: 1 GRAM
     Route: 040
     Dates: start: 20230211, end: 20230306
  24. ACUPAN [Suspect]
     Active Substance: NEFOPAM HYDROCHLORIDE
     Indication: Pain
     Dosage: ONE AMPOULE EVERY 4 HOURS IF PAIN
     Route: 048
     Dates: start: 20230106, end: 20230302
  25. ARANESP [Suspect]
     Active Substance: DARBEPOETIN ALFA
     Indication: Anaemia
     Dosage: 300 MICROGRAM PER GRAM, 1 ADMINISTRATION PER WEEK
     Route: 058
     Dates: start: 20230213
  26. ARANESP [Suspect]
     Active Substance: DARBEPOETIN ALFA
     Indication: Anaemia
     Dosage: 1 ADMINISTRATION PAR SEMAINE
     Route: 058
     Dates: start: 20230213
  27. CEFTRIAXONE [Suspect]
     Active Substance: CEFTRIAXONE
     Indication: Bacterial infection
     Dosage: 2 GRAM, 1 G MORNING AND EVENING
     Route: 048
     Dates: start: 20230209
  28. CYCLOPHOSPHAMIDE [Suspect]
     Active Substance: CYCLOPHOSPHAMIDE
     Indication: Diffuse large B-cell lymphoma
     Dosage: 1 CURE
     Route: 065
     Dates: start: 20221227
  29. CYCLOPHOSPHAMIDE [Suspect]
     Active Substance: CYCLOPHOSPHAMIDE
     Indication: Diffuse large B-cell lymphoma
  30. ALPRAZOLAM [Suspect]
     Active Substance: ALPRAZOLAM
     Indication: Anxiety
     Dosage: 1 CP 0.25MG SI ANGOISSE
     Route: 048
     Dates: start: 20230106, end: 20230209
  31. ALPRAZOLAM [Suspect]
     Active Substance: ALPRAZOLAM
     Indication: Anxiety
  32. CALCIUM [Suspect]
     Active Substance: CALCIUM
     Indication: Prophylaxis
     Dosage: UN CP TOUS LES LUNDIS ET JEUDIS
     Route: 048
     Dates: start: 20230102
  33. CIPROFLOXACIN [Suspect]
     Active Substance: CIPROFLOXACIN
     Indication: Bacterial infection
     Route: 065
     Dates: start: 20230203, end: 20230208
  34. RITUXIMAB [Suspect]
     Active Substance: RITUXIMAB
     Indication: Diffuse large B-cell lymphoma
     Dosage: 1 CURE
     Route: 065
     Dates: start: 20221227
  35. CILASTATIN SODIUM\IMIPENEM [Suspect]
     Active Substance: CILASTATIN SODIUM\IMIPENEM
     Indication: Bacterial infection
     Dosage: 1 INJECTION (800 MG) PAR JOUR
     Route: 040
     Dates: start: 20230114, end: 20230208
  36. CEFTRIAXONE [Suspect]
     Active Substance: CEFTRIAXONE
     Indication: Bacterial infection
     Dosage: 1 G MATIN ET SOIR
     Route: 048
     Dates: start: 20230209
  37. DAPTOMYCIN [Suspect]
     Active Substance: DAPTOMYCIN
     Indication: Bacterial infection
     Route: 040
     Dates: start: 20230211, end: 20230306
  38. NALOXEGOL OXALATE [Suspect]
     Active Substance: NALOXEGOL OXALATE
     Indication: Constipation
     Dosage: SI BESOIN
     Route: 048
     Dates: start: 20230211
  39. DOXORUBICIN [Suspect]
     Active Substance: DOXORUBICIN
     Indication: Diffuse large B-cell lymphoma
     Dosage: 1 CURE
     Route: 065
     Dates: start: 20221227
  40. VALACYCLOVIR HYDROCHLORIDE [Suspect]
     Active Substance: VALACYCLOVIR HYDROCHLORIDE
     Indication: Bacterial infection
     Dosage: 500MG MATIN ET SOIR
     Route: 048
     Dates: start: 20230106
  41. METRONIDAZOLE [Suspect]
     Active Substance: METRONIDAZOLE
     Indication: Bacterial infection
     Dosage: 500 MG MATIN, MIDI ET SOIR
     Route: 048
     Dates: start: 20230209, end: 20230303
  42. MORPHINE [Suspect]
     Active Substance: MORPHINE
     Indication: Pain
     Dosage: 1 CP SKENAN LP30MG TOUTES LES 12H
     Route: 048
     Dates: start: 20230210, end: 20230218
  43. CASPOFUNGIN ACETATE [Suspect]
     Active Substance: CASPOFUNGIN ACETATE
     Indication: Fungal infection
     Route: 040
     Dates: start: 20230126
  44. ACUPAN [Suspect]
     Active Substance: NEFOPAM HYDROCHLORIDE
     Indication: Pain
     Dosage: UNE AMPOULE TOUTES LES 4 HEURES SI DOULEUR
     Route: 048
     Dates: start: 20230106, end: 20230302

REACTIONS (1)
  - Agranulocytosis [Recovered/Resolved]

NARRATIVE: CASE EVENT DATE: 20230201
